FAERS Safety Report 7204095-1 (Version None)
Quarter: 2010Q4

REPORT INFORMATION
  Report Type: 
  Country: None (occurrence: None)
  Receive Date: 20101230
  Receipt Date: 20101221
  Transmission Date: 20110411
  Serious: Yes (Other)
  Sender: FDA-Public Use
  Company Number: US-JNJCH-2010029480

PATIENT
  Age: 84 Year
  Sex: Female
  Weight: 58.1 kg

DRUGS (1)
  1. ROGAINE [Suspect]
     Indication: ALOPECIA
     Dosage: TEXT:DROPPERFUL TWICE DAILY
     Route: 061

REACTIONS (2)
  - ALOPECIA [None]
  - CEREBROVASCULAR ACCIDENT [None]
